FAERS Safety Report 4632925-6 (Version None)
Quarter: 2005Q2

REPORT INFORMATION
  Report Type: 
  Country: None (occurrence: None)
  Receive Date: 20050412
  Receipt Date: 20040531
  Transmission Date: 20051028
  Serious: Yes (Death)
  Sender: FDA-Public Use
  Company Number: JP-ROCHE-369552

PATIENT
  Age: 67 Year
  Sex: Male

DRUGS (2)
  1. ROCEPHIN [Suspect]
     Indication: PYREXIA
     Dosage: ROUTE - INTRAVENOUS (NOT OTHERWISE SPECIFIED).
     Route: 050
     Dates: start: 20040529, end: 20040529
  2. SODIUM CHLORIDE [Concomitant]
     Dosage: DRUG NAME REPORTED AS: ISOTONIC SODIUM CHLORIDE SOLUTION. ROUTE - INTRAVENOUS (NOT OTHERWISE SPECIF+
     Route: 050
     Dates: start: 20040529, end: 20040529

REACTIONS (2)
  - ANAPHYLACTIC SHOCK [None]
  - CARDIO-RESPIRATORY ARREST [None]
